FAERS Safety Report 11189796 (Version 1)
Quarter: 2015Q2

REPORT INFORMATION
  Report Type: Spontaneous
  Country: US (occurrence: None)
  Receive Date: 20150601
  Receipt Date: 20150601
  Transmission Date: 20150821
  Serious: Yes (Hospitalization)
  Sender: FDA-Public Use
  Company Number: 2014-001471

PATIENT
  Age: 87 Year
  Sex: Female

DRUGS (6)
  1. LASIX [Concomitant]
     Active Substance: FUROSEMIDE
  2. METFORMIN [Concomitant]
     Active Substance: METFORMIN HYDROCHLORIDE
  3. ACTONEL [Suspect]
     Active Substance: RISEDRONATE SODIUM
     Indication: OSTEOPOROSIS
     Route: 048
     Dates: start: 20140513, end: 20140516
  4. OMEPRAZOLE (OMEPRAZOLE) [Concomitant]
     Active Substance: OMEPRAZOLE
  5. K-TAB (POTASSIUM CHLORIDE) [Concomitant]
  6. COREG [Concomitant]
     Active Substance: CARVEDILOL

REACTIONS (9)
  - Peripheral swelling [None]
  - Productive cough [None]
  - Back pain [None]
  - Joint swelling [None]
  - Inappropriate schedule of drug administration [None]
  - Femur fracture [None]
  - Gastrooesophageal reflux disease [None]
  - Incorrect dose administered [None]
  - Oropharyngeal pain [None]

NARRATIVE: CASE EVENT DATE: 2004
